FAERS Safety Report 15113067 (Version 2)
Quarter: 2018Q3

REPORT INFORMATION
  Report Type: Spontaneous
  Country: IL (occurrence: IL)
  Receive Date: 20180706
  Receipt Date: 20180709
  Transmission Date: 20181010
  Serious: Yes (Hospitalization, Other)
  Sender: FDA-Public Use
  Company Number: IL-009507513-1807ISR001136

PATIENT
  Age: 55 Year
  Sex: Female

DRUGS (4)
  1. KEYTRUDA [Suspect]
     Active Substance: PEMBROLIZUMAB
     Indication: LUNG NEOPLASM MALIGNANT
     Dosage: UNK, FIRST TREATMENT
     Dates: start: 2018
  2. KEYTRUDA [Suspect]
     Active Substance: PEMBROLIZUMAB
     Dosage: UNK, LAST TREATMENT
     Dates: start: 20180628
  3. KEYTRUDA [Suspect]
     Active Substance: PEMBROLIZUMAB
     Dosage: UNK, SECOND TREATMENT
     Dates: start: 2018
  4. KEYTRUDA [Suspect]
     Active Substance: PEMBROLIZUMAB
     Dosage: UNK, THIRD TREATMENT
     Dates: start: 201806

REACTIONS (8)
  - Thyroid disorder [Unknown]
  - Syncope [Recovering/Resolving]
  - Malaise [Recovering/Resolving]
  - Body temperature increased [Recovering/Resolving]
  - Fatigue [Unknown]
  - Body temperature increased [Recovering/Resolving]
  - Pneumonia [Recovering/Resolving]
  - Blood pressure decreased [Recovering/Resolving]

NARRATIVE: CASE EVENT DATE: 2018
